FAERS Safety Report 10026988 (Version 2)
Quarter: 2014Q2

REPORT INFORMATION
  Report Type: Spontaneous
  Country: JP (occurrence: JP)
  Receive Date: 20140321
  Receipt Date: 20140409
  Transmission Date: 20141212
  Serious: Yes (Hospitalization)
  Sender: FDA-Public Use
  Company Number: JP-JNJFOC-20140305230

PATIENT
  Age: 9 Decade
  Sex: Female

DRUGS (2)
  1. TRAMCET [Suspect]
     Indication: PAIN
     Route: 048
  2. RIMATIL [Concomitant]
     Route: 048

REACTIONS (2)
  - Investigation [Unknown]
  - Hyperhidrosis [Unknown]
